FAERS Safety Report 6739563-X (Version None)
Quarter: 2010Q2

REPORT INFORMATION
  Report Type: 
  Country: None (occurrence: None)
  Receive Date: 20100521
  Receipt Date: 20100506
  Transmission Date: 20101027
  Serious: Yes (Hospitalization, Other)
  Sender: FDA-Public Use
  Company Number: 234025K06USA

PATIENT
  Age: 33 Year
  Sex: Female
  Weight: 104 kg

DRUGS (7)
  1. REBIF [Suspect]
     Indication: MULTIPLE SCLEROSIS
     Dosage: 44 MCG, 3 IN 1 WK, SUBCUTANEOUS,44 MCG, 3 IN 1 WK, SUBCUTANEOUS
     Route: 058
     Dates: start: 20051101
  2. REBIF [Suspect]
     Indication: MULTIPLE SCLEROSIS
     Dosage: 44 MCG, 3 IN 1 WK, SUBCUTANEOUS,44 MCG, 3 IN 1 WK, SUBCUTANEOUS
     Route: 058
     Dates: start: 20091216
  3. ZANAFLEX [Concomitant]
  4. TOPAMAX [Concomitant]
  5. LEXAPRO [Concomitant]
  6. DYAZIDE [Concomitant]
  7. SOLU-MEDROL [Concomitant]

REACTIONS (4)
  - CONVULSION [None]
  - HEADACHE [None]
  - SEPSIS [None]
  - URINARY TRACT INFECTION [None]
